FAERS Safety Report 23450479 (Version 2)
Quarter: 2024Q1

REPORT INFORMATION
  Report Type: Report from Study
  Country: US (occurrence: US)
  Receive Date: 20240129
  Receipt Date: 20240205
  Transmission Date: 20240409
  Serious: Yes (Life-Threatening)
  Sender: FDA-Public Use
  Company Number: US-JNJFOC-20240158944

PATIENT
  Age: 23 Year
  Sex: Male
  Weight: 86.8 kg

DRUGS (5)
  1. DARATUMUMAB [Suspect]
     Active Substance: DARATUMUMAB
     Indication: Minimal residual disease
     Route: 065
     Dates: start: 20230912, end: 20231003
  2. CYCLOPHOSPHAMIDE [Suspect]
     Active Substance: CYCLOPHOSPHAMIDE
     Indication: Minimal residual disease
     Route: 065
     Dates: start: 20231111
  3. CYTARABINE [Concomitant]
     Active Substance: CYTARABINE
     Indication: Minimal residual disease
     Route: 065
     Dates: start: 20230912, end: 20231003
  4. METHOTREXATE [Concomitant]
     Active Substance: METHOTREXATE
     Indication: Minimal residual disease
     Route: 065
     Dates: start: 20230912, end: 20231003
  5. PEGASPARGASE [Concomitant]
     Active Substance: PEGASPARGASE
     Indication: Minimal residual disease
     Route: 065
     Dates: start: 20230912, end: 20231003

REACTIONS (2)
  - Neutrophil count decreased [Recovered/Resolved]
  - Off label use [Unknown]

NARRATIVE: CASE EVENT DATE: 20231013
